FAERS Safety Report 11321205 (Version 2)
Quarter: 2015Q3

REPORT INFORMATION
  Report Type: Report from Study
  Country: TW (occurrence: TW)
  Receive Date: 20150729
  Receipt Date: 20150804
  Transmission Date: 20151125
  Serious: Yes (Other)
  Sender: FDA-Public Use
  Company Number: PHHY2015TW090706

PATIENT
  Age: 59 Year
  Sex: Male

DRUGS (71)
  1. ACETYLCYSTEINE. [Concomitant]
     Active Substance: ACETYLCYSTEINE
     Indication: SUPPLEMENTATION THERAPY
     Dosage: 600 MG, UNK
     Route: 048
     Dates: start: 20131208, end: 20131229
  2. ACYCLOVIR. [Concomitant]
     Active Substance: ACYCLOVIR
     Indication: HERPES ZOSTER
     Dosage: 200 MG, UNK
     Route: 048
     Dates: start: 20121107, end: 20121128
  3. CODEINE [Concomitant]
     Active Substance: CODEINE
     Dosage: 30 MG, UNK
     Route: 048
     Dates: start: 20140102, end: 20140106
  4. INDOMETHACIN. [Concomitant]
     Active Substance: INDOMETHACIN
     Indication: PAIN
     Dosage: 25 MG, UNK
     Route: 048
     Dates: start: 20121122, end: 20121128
  5. MAGNESIUM OXIDE. [Concomitant]
     Active Substance: MAGNESIUM OXIDE
     Dosage: 250 MG, UNK
     Route: 048
     Dates: start: 20131018, end: 20131021
  6. MAGNESIUM OXIDE. [Concomitant]
     Active Substance: MAGNESIUM OXIDE
     Dosage: 250 MG, UNK
     Route: 048
     Dates: start: 20131025, end: 20131026
  7. ULTRACILLIN//AMPICILLIN SODIUM [Concomitant]
     Indication: PAIN
     Dosage: 362.5 MG, UNK
     Route: 048
     Dates: start: 20121010, end: 20121016
  8. ULTRACILLIN//AMPICILLIN SODIUM [Concomitant]
     Dosage: 362.5 MG, UNK
     Route: 048
     Dates: start: 20121122, end: 20121128
  9. VORICONAZOLE. [Concomitant]
     Active Substance: VORICONAZOLE
     Indication: FUNGAL INFECTION
     Dosage: 200 MG, UNK
     Route: 048
     Dates: start: 20131214, end: 20131223
  10. ACETAMINOPHEN. [Concomitant]
     Active Substance: ACETAMINOPHEN
     Indication: PYREXIA
     Dosage: 500 MG, UNK
     Route: 048
     Dates: start: 20121009, end: 20121013
  11. CIPROFLOXACIN HCL [Concomitant]
     Active Substance: CIPROFLOXACIN HYDROCHLORIDE
     Indication: SOFT TISSUE INFECTION
     Dosage: 500 MG, UNK
     Route: 048
     Dates: start: 20130221, end: 20130309
  12. COTRIMOXAZOLE [Concomitant]
     Active Substance: SULFAMETHOXAZOLE\TRIMETHOPRIM
     Indication: BACTERIAL INFECTION
     Dosage: 960 MG, UNK
     Route: 048
     Dates: start: 20121231, end: 20130128
  13. FEBUXOSTAT. [Concomitant]
     Active Substance: FEBUXOSTAT
     Indication: HYPERURICAEMIA
     Dosage: 80 MG, UNK
     Route: 048
     Dates: start: 20131220, end: 20140109
  14. FEBUXOSTAT. [Concomitant]
     Active Substance: FEBUXOSTAT
     Dosage: 40 MG, UNK
     Route: 048
     Dates: start: 20140109
  15. LACTOBACILLUS CASEI [Concomitant]
     Active Substance: LACTOBACILLUS CASEI
     Indication: GASTROINTESTINAL DISORDER
     Dosage: 250 MG, UNK
     Route: 048
     Dates: start: 20121122, end: 20121129
  16. LACTULOSE. [Concomitant]
     Active Substance: LACTULOSE
     Indication: CONSTIPATION
     Dosage: 15 ML, UNK
     Route: 048
     Dates: start: 20121016, end: 20121028
  17. LEVOCETIRIZINE [Concomitant]
     Active Substance: LEVOCETIRIZINE
     Indication: HYPERSENSITIVITY
     Dosage: 5 MG, UNK
     Route: 048
     Dates: start: 20130430, end: 20130520
  18. LINEZOLID. [Concomitant]
     Active Substance: LINEZOLID
     Indication: SOFT TISSUE INFECTION
     Dosage: 600 MG, UNK
     Route: 048
     Dates: start: 20121105, end: 20121114
  19. LORAZEPAM. [Concomitant]
     Active Substance: LORAZEPAM
     Indication: ANXIETY
     Dosage: 1 MG, UNK
     Route: 048
     Dates: start: 20121109, end: 20121227
  20. MAGNESIUM OXIDE. [Concomitant]
     Active Substance: MAGNESIUM OXIDE
     Indication: ANTACID THERAPY
     Dosage: 500 MG, UNK
     Route: 048
     Dates: start: 20121013, end: 20121025
  21. MAGNESIUM OXIDE. [Concomitant]
     Active Substance: MAGNESIUM OXIDE
     Dosage: 250 MG, UNK
     Route: 048
     Dates: start: 20131031, end: 20131101
  22. MAGNESIUM OXIDE. [Concomitant]
     Active Substance: MAGNESIUM OXIDE
     Dosage: 250 MG, UNK
     Route: 048
     Dates: start: 20131208, end: 20140119
  23. PIPERACILLIN [Concomitant]
     Active Substance: PIPERACILLIN
     Indication: SEPSIS
     Dosage: 4.5 G, UNK
     Route: 042
     Dates: start: 20121228, end: 20130103
  24. SUCRALFATE. [Concomitant]
     Active Substance: SUCRALFATE
     Dosage: 1000 MG, UNK
     Route: 048
     Dates: start: 20130221, end: 20130316
  25. ACYCLOVIR. [Concomitant]
     Active Substance: ACYCLOVIR
     Dosage: 200 MG, UNK
     Route: 048
     Dates: start: 20121207, end: 20130331
  26. CIPROFLOXACIN HCL [Concomitant]
     Active Substance: CIPROFLOXACIN HYDROCHLORIDE
     Indication: SKIN INFECTION
  27. HALOPERIDOL. [Concomitant]
     Active Substance: HALOPERIDOL
     Indication: CONFUSIONAL STATE
     Dosage: 5 MG, UNK
     Route: 030
     Dates: start: 20140129
  28. POLYSTYRENE SULFONATE CALCIUM [Concomitant]
     Active Substance: CALCIUM POLYSTYRENE SULFONATE
     Indication: HYPERURICAEMIA
     Dosage: 5 G, UNK
     Route: 048
     Dates: start: 20131230, end: 20140102
  29. CEFEPIME [Concomitant]
     Active Substance: CEFEPIME HYDROCHLORIDE
     Indication: INFECTION
     Dosage: 2000 MG, UNK
     Route: 042
     Dates: start: 20140127, end: 20140128
  30. CEFTAZIDIME. [Concomitant]
     Active Substance: CEFTAZIDIME
     Indication: SOFT TISSUE INFECTION
     Dosage: 1000 MG, UNK
     Route: 042
     Dates: start: 20121016, end: 20121017
  31. CODEINE [Concomitant]
     Active Substance: CODEINE
     Indication: COUGH
     Dosage: 30 MG, UNK
     Route: 048
     Dates: start: 20131220, end: 20131224
  32. COBAMAMIDE HEXAL [Concomitant]
     Indication: VITAMIN B12 DEFICIENCY
     Dosage: 250 MG, UNK
     Route: 048
     Dates: start: 20130416, end: 20130624
  33. INDOMETHACIN. [Concomitant]
     Active Substance: INDOMETHACIN
     Dosage: 25 MG, UNK
     Route: 048
     Dates: start: 20121221, end: 20130109
  34. MAGNESIUM OXIDE. [Concomitant]
     Active Substance: MAGNESIUM OXIDE
     Dosage: 250 MG, UNK
     Route: 048
     Dates: start: 20121129, end: 20121213
  35. METOCLOPRAMIDE. [Concomitant]
     Active Substance: METOCLOPRAMIDE
     Indication: PROPHYLAXIS
     Dosage: 9.08 MG, UNK
     Route: 042
     Dates: start: 20140128, end: 20140129
  36. NYSTATIN. [Concomitant]
     Active Substance: NYSTATIN
     Indication: OROPHARYNGEAL CANDIDIASIS
     Dosage: 500000 U, UNK
     Route: 048
     Dates: start: 20121214, end: 20121227
  37. NYSTATIN. [Concomitant]
     Active Substance: NYSTATIN
     Dosage: 400000 U, UNK
     Route: 048
     Dates: start: 20130221, end: 20130309
  38. VORICONAZOLE. [Concomitant]
     Active Substance: VORICONAZOLE
     Dosage: 200 MG, UNK
     Route: 048
     Dates: start: 20131214, end: 20131223
  39. ACETAMINOPHEN. [Concomitant]
     Active Substance: ACETAMINOPHEN
     Dosage: 500 MG, UNK
     Route: 048
     Dates: start: 20121016, end: 20121017
  40. AMBROXOL [Concomitant]
     Active Substance: AMBROXOL
     Indication: BRONCHOPULMONARY DISEASE
     Dosage: 30 MG, UNK
     Route: 048
     Dates: start: 20121228, end: 20130101
  41. BROWN MIXTURE                      /01682301/ [Concomitant]
     Indication: ANTITUSSIVE THERAPY
     Dosage: 200 ML, UNK
     Route: 048
     Dates: start: 20121207, end: 20121214
  42. CELECOXIB. [Concomitant]
     Active Substance: CELECOXIB
     Indication: PAIN
     Dosage: 200 MG, UNK
     Route: 048
     Dates: start: 20140103, end: 20140108
  43. COTRIMOXAZOLE [Concomitant]
     Active Substance: SULFAMETHOXAZOLE\TRIMETHOPRIM
     Indication: INFECTION
     Dosage: 960 MG, UNK
     Route: 048
     Dates: start: 20131221, end: 20140121
  44. COTRIMOXAZOLE [Concomitant]
     Active Substance: SULFAMETHOXAZOLE\TRIMETHOPRIM
     Dosage: 1 MG, UNK
     Route: 042
     Dates: start: 20140127
  45. NORMACOL [Concomitant]
     Active Substance: KARAYA GUM
     Indication: CONSTIPATION
     Dosage: 7 G, UNK
     Route: 048
     Dates: start: 20131121, end: 20131125
  46. PANTOPRAZOLE [Concomitant]
     Active Substance: PANTOPRAZOLE SODIUM
     Indication: ABDOMINAL PAIN UPPER
     Dosage: 40 MG, UNK
     Route: 048
     Dates: start: 20121221, end: 20130103
  47. ZOLEDRONATE [Suspect]
     Active Substance: ZOLEDRONIC ACID
     Indication: PLASMA CELL MYELOMA
     Dosage: 4 MG, UNK
     Route: 041
     Dates: start: 20121005, end: 20131004
  48. CEFTRIAXONE. [Concomitant]
     Active Substance: CEFTRIAXONE
     Indication: INFECTION
     Dosage: 1 G, UNK
     Route: 042
     Dates: start: 20131207, end: 20131219
  49. ESOMEPRAZOLE [Concomitant]
     Active Substance: ESOMEPRAZOLE
     Indication: GASTRIC ULCER
     Dosage: 40 MG, UNK
     Route: 048
     Dates: start: 20130221, end: 20130308
  50. LENOGRASTIM [Concomitant]
     Active Substance: LENOGRASTIM
     Indication: NEUTROPENIA
     Dosage: 250 UG, UNK
     Route: 058
     Dates: start: 20131214, end: 20131226
  51. LINEZOLID. [Concomitant]
     Active Substance: LINEZOLID
     Dosage: 600 MG, UNK
     Route: 048
     Dates: start: 20130309, end: 20130311
  52. LORAZEPAM. [Concomitant]
     Active Substance: LORAZEPAM
     Dosage: 1 MG, UNK
     Route: 048
     Dates: start: 20130514, end: 20130614
  53. MAGNESIUM OXIDE. [Concomitant]
     Active Substance: MAGNESIUM OXIDE
     Dosage: 500 MG, UNK
     Route: 048
     Dates: start: 20140120
  54. METOCLOPRAMIDE. [Concomitant]
     Active Substance: METOCLOPRAMIDE
     Indication: PROPHYLAXIS OF NAUSEA AND VOMITING
     Dosage: 30 MG, UNK
     Route: 048
     Dates: start: 20131114, end: 20131120
  55. TRANEXAMIC [Concomitant]
     Indication: HAEMORRHAGE
     Dosage: 250 MG, UNK
     Route: 048
     Dates: start: 20131208, end: 20131212
  56. ACETAMINOPHEN. [Concomitant]
     Active Substance: ACETAMINOPHEN
     Dosage: 500 MG, UNK
     Route: 048
     Dates: start: 20131206, end: 20131221
  57. AMPICILLIN [Concomitant]
     Active Substance: AMPICILLIN
     Indication: INFECTION
     Dosage: 1500 MG, UNK
     Route: 042
     Dates: start: 20140128
  58. CEFTAZIDIME. [Concomitant]
     Active Substance: CEFTAZIDIME
     Indication: SKIN INFECTION
  59. AMOXICILLIN + CLAVULANIC ACID [Concomitant]
     Active Substance: AMOXICILLIN\CLAVULANIC ACID
     Indication: INFECTION
     Dosage: 1 G, UNK
     Route: 048
     Dates: start: 20140104, end: 20140113
  60. CONSRINE [Concomitant]
     Indication: ANTITUSSIVE THERAPY
     Dosage: 5 ML, UNK
     Route: 048
     Dates: start: 20131212, end: 20131222
  61. LORAZEPAM. [Concomitant]
     Active Substance: LORAZEPAM
     Dosage: 1 MG, UNK
     Route: 048
     Dates: start: 20130223, end: 20130513
  62. MAGNESIUM OXIDE. [Concomitant]
     Active Substance: MAGNESIUM OXIDE
     Indication: CONSTIPATION
     Dosage: 250 MG, UNK
     Route: 048
     Dates: start: 20121122, end: 20121128
  63. NYSTATIN. [Concomitant]
     Active Substance: NYSTATIN
     Dosage: 3 ML, (100000 U/ML )
     Route: 048
     Dates: start: 20131215, end: 20131219
  64. SUCRALFATE. [Concomitant]
     Active Substance: SUCRALFATE
     Indication: GASTRIC ULCER
     Dosage: 500 MG, UNK
     Route: 048
     Dates: start: 20121109, end: 20121110
  65. SUCRALFATE. [Concomitant]
     Active Substance: SUCRALFATE
     Dosage: 500 MG, UNK
     Route: 048
     Dates: start: 20121214, end: 20121220
  66. ULTRACILLIN//AMPICILLIN SODIUM [Concomitant]
     Indication: BONE PAIN
     Dosage: 362.5 MG, UNK
     Route: 048
     Dates: start: 20121008, end: 20121010
  67. ULTRACILLIN//AMPICILLIN SODIUM [Concomitant]
     Dosage: 362.5 MG, UNK
     Route: 048
     Dates: start: 20121022, end: 20121025
  68. CODEINE [Concomitant]
     Active Substance: CODEINE
     Dosage: 30 MG, UNK
     Route: 048
     Dates: start: 20131225, end: 20140102
  69. ESOMEPRAZOLE [Concomitant]
     Active Substance: ESOMEPRAZOLE
     Dosage: 40 MG, UNK
     Route: 048
     Dates: start: 20140128, end: 20140129
  70. LINEZOLID. [Concomitant]
     Active Substance: LINEZOLID
     Indication: SKIN INFECTION
     Dosage: 600 MG, UNK
     Route: 048
     Dates: start: 20121114, end: 20121230
  71. MAGNESIUM OXIDE. [Concomitant]
     Active Substance: MAGNESIUM OXIDE
     Dosage: 250 MG, UNK
     Route: 048
     Dates: start: 20121225, end: 20130101

REACTIONS (1)
  - Thoracic vertebral fracture [Recovered/Resolved]

NARRATIVE: CASE EVENT DATE: 20131025
